FAERS Safety Report 7191923-1 (Version None)
Quarter: 2010Q4

REPORT INFORMATION
  Report Type: 
  Country: None (occurrence: None)
  Receive Date: 20101223
  Receipt Date: 20101026
  Transmission Date: 20110411
  Serious: Yes (Hospitalization, Other)
  Sender: FDA-Public Use
  Company Number: US-BAYER-201032543NA

PATIENT
  Sex: Female
  Weight: 61.364 kg

DRUGS (12)
  1. YASMIN [Suspect]
     Indication: CONTRACEPTION
     Dosage: 1 DF, ONCE
     Route: 048
     Dates: start: 20060901, end: 20061001
  2. YASMIN [Suspect]
     Indication: ACNE
  3. IBUPROFEN [Concomitant]
  4. SPIRONOLACTONE [Concomitant]
     Dates: start: 20060101, end: 20090101
  5. TORADOL [Concomitant]
     Indication: SLEEP DISORDER
     Dosage: 1 DF, UNK
     Route: 030
     Dates: start: 20061013, end: 20061013
  6. TORADOL [Concomitant]
     Indication: MIGRAINE
  7. PHENERGAN [Concomitant]
     Indication: MIGRAINE
     Dosage: DAILY DOSE 25 MG
     Route: 030
     Dates: start: 20061013, end: 20061013
  8. PHENERGAN [Concomitant]
     Indication: SLEEP DISORDER
  9. COLACE [Concomitant]
     Route: 048
  10. ZOFRAN [Concomitant]
     Dosage: 4 MG Q8H
  11. DIAMOX [Concomitant]
     Dosage: 500 MG-250 MG-500 MG
  12. CORTICOSTEROIDS [Concomitant]
     Route: 061

REACTIONS (11)
  - BENIGN HEPATIC NEOPLASM [None]
  - CEREBRAL HAEMORRHAGE [None]
  - CEREBRAL THROMBOSIS [None]
  - DEEP VEIN THROMBOSIS [None]
  - GALLBLADDER DISORDER [None]
  - HEPATIC ADENOMA [None]
  - HYPERTENSION [None]
  - MYOCARDIAL INFARCTION [None]
  - PULMONARY EMBOLISM [None]
  - THROMBOPHLEBITIS [None]
  - THROMBOSIS PROPHYLAXIS [None]
